FAERS Safety Report 8539936-9 (Version None)
Quarter: 2012Q3

REPORT INFORMATION
  Report Type: 
  Country: None (occurrence: None)
  Receive Date: 20120726
  Receipt Date: 20120717
  Transmission Date: 20120928
  Serious: Yes (Hospitalization)
  Sender: FDA-Public Use
  Company Number: JP-ASTRAZENECA-2012SE36881

PATIENT
  Age: 25476 Day
  Sex: Female
  Weight: 50 kg

DRUGS (6)
  1. CRESTOR [Suspect]
     Indication: HYPERLIPIDAEMIA
     Route: 048
     Dates: start: 20101201
  2. ASPIRIN [Concomitant]
     Indication: ANGINA PECTORIS
     Route: 048
     Dates: start: 20110429, end: 20110606
  3. BISOPROLOL FUMARATE [Concomitant]
     Indication: ANGINA PECTORIS
     Route: 048
     Dates: start: 20101201
  4. FAMOTIDINE [Concomitant]
     Indication: GASTRITIS
     Route: 048
     Dates: start: 20110429, end: 20110606
  5. FRANDOL S [Concomitant]
     Indication: ANGINA PECTORIS
     Route: 062
     Dates: start: 20110429, end: 20111128
  6. SELBEX [Concomitant]
     Indication: GASTRITIS
     Route: 048
     Dates: start: 20101201

REACTIONS (2)
  - HAEMOLYTIC ANAEMIA [None]
  - FEELING ABNORMAL [None]
